FAERS Safety Report 5716955-9 (Version None)
Quarter: 2008Q2

REPORT INFORMATION
  Report Type: 
  Country: None (occurrence: None)
  Receive Date: 20080424
  Receipt Date: 20080415
  Transmission Date: 20081010
  Serious: Yes (Hospitalization, Disabling)
  Sender: FDA-Public Use
  Company Number: US-MERCK-0709USA00195

PATIENT
  Age: 51 Year
  Sex: Female
  Weight: 71 kg

DRUGS (1)
  1. FOSAMAX [Suspect]
     Indication: OSTEOPOROSIS
     Route: 048
     Dates: start: 20040201, end: 20060801

REACTIONS (15)
  - ABSCESS [None]
  - ADVERSE EVENT [None]
  - BLOOD CHOLESTEROL INCREASED [None]
  - CHEST PAIN [None]
  - HYPERLIPIDAEMIA [None]
  - HYPERTENSION [None]
  - HYPERTRIGLYCERIDAEMIA [None]
  - INTERVERTEBRAL DISC INJURY [None]
  - JAW DISORDER [None]
  - OSTEOARTHRITIS [None]
  - PAIN [None]
  - RIB FRACTURE [None]
  - ROAD TRAFFIC ACCIDENT [None]
  - TOOTH DISORDER [None]
  - TRISMUS [None]
